FAERS Safety Report 6126529-6 (Version None)
Quarter: 2009Q1

REPORT INFORMATION
  Report Type: 
  Country: None (occurrence: None)
  Receive Date: 20090320
  Receipt Date: 20090309
  Transmission Date: 20090719
  Serious: Yes (Other)
  Sender: FDA-Public Use
  Company Number: JP-PFIZER INC-2009184475

PATIENT

DRUGS (1)
  1. CABERGOLINE [Suspect]
     Dosage: FREQUENCY: 2X/WK,
     Route: 048

REACTIONS (1)
  - MEMORY IMPAIRMENT [None]
